FAERS Safety Report 18503789 (Version 1)
Quarter: 2020Q4

REPORT INFORMATION
  Report Type: Report from Study
  Country: US (occurrence: US)
  Receive Date: 20201113
  Receipt Date: 20201113
  Transmission Date: 20210114
  Serious: Yes (Death, Hospitalization)
  Sender: FDA-Public Use
  Company Number: US-ASTRAZENECA-2020SF48999

PATIENT
  Age: 855 Month
  Sex: Male
  Weight: 63.5 kg

DRUGS (1)
  1. TAGRISSO [Suspect]
     Active Substance: OSIMERTINIB
     Indication: LUNG NEOPLASM MALIGNANT
     Route: 048

REACTIONS (7)
  - Gait disturbance [Unknown]
  - Death [Fatal]
  - Cerebrovascular accident [Not Recovered/Not Resolved]
  - Asthenia [Unknown]
  - Posture abnormal [Unknown]
  - Weight decreased [Unknown]
  - Cognitive disorder [Unknown]

NARRATIVE: CASE EVENT DATE: 202009
